FAERS Safety Report 4743870-X (Version None)
Quarter: 2005Q3

REPORT INFORMATION
  Report Type: 
  Country: None (occurrence: None)
  Receive Date: 20050809
  Receipt Date: 20050728
  Transmission Date: 20060218
  Serious: Yes (Other)
  Sender: FDA-Public Use
  Company Number: HQWYE821029JUN05

PATIENT
  Age: 36 Year
  Sex: Female

DRUGS (9)
  1. ARTANE [Suspect]
     Indication: CATAPLEXY
     Dosage: 6 MG 1X PER 1 DAY
     Route: 048
     Dates: start: 20050622, end: 20050626
  2. CHLORPROMAZINE HCL [Concomitant]
  3. DEPAS (ETIZOLAM) [Concomitant]
  4. ROHYPNOL (FLUNITRAZEPAM) [Concomitant]
  5. ROHYPNOL (FLUNITRAZEPAM) [Concomitant]
  6. HALOPERIDOL [Concomitant]
  7. AKINETON [Concomitant]
  8. LITHIUM CARBONATE [Concomitant]
  9. RISPERIDONE [Concomitant]

REACTIONS (7)
  - ALANINE AMINOTRANSFERASE INCREASED [None]
  - ASPARTATE AMINOTRANSFERASE INCREASED [None]
  - BLOOD ALKALINE PHOSPHATASE INCREASED [None]
  - BLOOD CREATINE PHOSPHOKINASE INCREASED [None]
  - GAMMA-GLUTAMYLTRANSFERASE DECREASED [None]
  - HEPATIC FUNCTION ABNORMAL [None]
  - PYREXIA [None]
